FAERS Safety Report 7437699-1 (Version None)
Quarter: 2011Q2

REPORT INFORMATION
  Report Type: 
  Country: None (occurrence: None)
  Receive Date: 20110426
  Receipt Date: 20110418
  Transmission Date: 20111010
  Serious: Yes (Other)
  Sender: FDA-Public Use
  Company Number: GB-ROCHE-771807

PATIENT

DRUGS (1)
  1. CAPECITABINE [Suspect]
     Indication: NEUROENDOCRINE CARCINOMA
     Dosage: FREQ: FOR 14 CONSECUTIVE DAYS EVERY 3 WEEKS.
     Route: 048

REACTIONS (14)
  - LEUKOPENIA [None]
  - NEUTROPENIA [None]
  - BLOOD UREA INCREASED [None]
  - NAUSEA [None]
  - HAEMOGLOBIN DECREASED [None]
  - LIVER FUNCTION TEST ABNORMAL [None]
  - THROMBOCYTOPENIA [None]
  - DIARRHOEA [None]
  - PAIN [None]
  - DECREASED APPETITE [None]
  - INFECTION [None]
  - FATIGUE [None]
  - VOMITING [None]
  - HYPOKALAEMIA [None]
